FAERS Safety Report 15857991 (Version 1)
Quarter: 2019Q1

REPORT INFORMATION
  Report Type: Spontaneous
  Country: US (occurrence: US)
  Receive Date: 20190123
  Receipt Date: 20190123
  Transmission Date: 20190417
  Serious: No
  Sender: FDA-Public Use
  Company Number: None

PATIENT
  Age: 65 Year
  Sex: Female

DRUGS (2)
  1. VENLAFAXINE HYDROCHLORIDE EXTENDED RELEASE CAPSULES US [Suspect]
     Active Substance: VENLAFAXINE HYDROCHLORIDE
     Indication: HOT FLUSH
     Dosage: ?          QUANTITY:30 CAPSULE(S);?
     Route: 048
  2. VENLAFAXINE HYDROCHLORIDE EXTENDED RELEASE CAPSULES US [Suspect]
     Active Substance: VENLAFAXINE HYDROCHLORIDE
     Indication: HEADACHE
     Dosage: ?          QUANTITY:30 CAPSULE(S);?
     Route: 048

REACTIONS (6)
  - Product substitution issue [None]
  - Hypoaesthesia [None]
  - Feeling abnormal [None]
  - Abnormal dreams [None]
  - Paraesthesia [None]
  - Anxiety [None]

NARRATIVE: CASE EVENT DATE: 20190115
